FAERS Safety Report 24112233 (Version 1)
Quarter: 2024Q3

REPORT INFORMATION
  Report Type: Report from Study
  Country: US (occurrence: None)
  Receive Date: 20240719
  Receipt Date: 20240719
  Transmission Date: 20241016
  Serious: Yes (Hospitalization)
  Sender: ASTRAZENECA
  Company Number: 2021A578577

PATIENT
  Sex: Male

DRUGS (1)
  1. CALQUENCE [Suspect]
     Active Substance: ACALABRUTINIB
     Route: 048

REACTIONS (5)
  - Chest pain [Recovering/Resolving]
  - Red blood cell count decreased [Recovering/Resolving]
  - Energy increased [Unknown]
  - Platelet count decreased [Recovering/Resolving]
  - Product dose omission issue [Unknown]
